FAERS Safety Report 25835367 (Version 1)
Quarter: 2025Q3

REPORT INFORMATION
  Report Type: Spontaneous
  Country: US (occurrence: US)
  Receive Date: 20250923
  Receipt Date: 20250923
  Transmission Date: 20251020
  Serious: Yes (Other)
  Sender: COOPERSURGICAL
  Company Number: US-COOPERSURGICAL, INC.-2025CPS006799

PATIENT
  Age: 28 Year
  Sex: Female
  Weight: 90.703 kg

DRUGS (2)
  1. PARAGARD T 380A [Suspect]
     Active Substance: COPPER
     Indication: Contraception
     Route: 015
     Dates: start: 20161007
  2. PHENTERMINE [Concomitant]
     Active Substance: PHENTERMINE
     Dates: start: 202101

REACTIONS (19)
  - Hydrosalpinx [Not Recovered/Not Resolved]
  - Pelvic inflammatory disease [Not Recovered/Not Resolved]
  - Reproductive complication associated with device [Not Recovered/Not Resolved]
  - Device breakage [Recovered/Resolved]
  - Foreign body in reproductive tract [Recovered/Resolved]
  - Complication of device removal [Recovered/Resolved]
  - Embedded device [Recovered/Resolved]
  - Vaginal discharge [Unknown]
  - Rectal spasm [Unknown]
  - Proctalgia [None]
  - Abdominal distension [Recovered/Resolved]
  - Tenderness [Unknown]
  - Emotional distress [Unknown]
  - Bacterial vaginosis [Not Recovered/Not Resolved]
  - Dyspareunia [Unknown]
  - Device expulsion [Recovered/Resolved]
  - Pelvic pain [Unknown]
  - Pain [Unknown]
  - Abdominal pain [Unknown]

NARRATIVE: CASE EVENT DATE: 20161001
